FAERS Safety Report 7712259-3 (Version None)
Quarter: 2011Q3

REPORT INFORMATION
  Report Type: 
  Country: None (occurrence: None)
  Receive Date: 20110826
  Receipt Date: 20110815
  Transmission Date: 20111222
  Serious: Yes (Other)
  Sender: FDA-Public Use
  Company Number: US-PFIZER INC-2011187554

PATIENT
  Sex: Female
  Weight: 59 kg

DRUGS (3)
  1. PRISTIQ [Suspect]
     Indication: CEREBRAL THROMBOSIS
     Dosage: 75 MG, 2X/DAY
     Route: 048
  2. PREMARIN [Suspect]
     Dosage: UNK
  3. PRISTIQ [Suspect]
     Indication: SCAR

REACTIONS (4)
  - TRI-IODOTHYRONINE DECREASED [None]
  - DRUG ADMINISTRATION ERROR [None]
  - HYPERHIDROSIS [None]
  - LIVER DISORDER [None]
